FAERS Safety Report 6569948-6 (Version None)
Quarter: 2010Q1

REPORT INFORMATION
  Report Type: 
  Country: None (occurrence: None)
  Receive Date: 20100204
  Receipt Date: 20100126
  Transmission Date: 20100710
  Serious: Yes (Hospitalization)
  Sender: FDA-Public Use
  Company Number: US-ELI_LILLY_AND_COMPANY-US201001005603

PATIENT
  Sex: Male

DRUGS (2)
  1. HUMALOG [Suspect]
     Indication: DIABETES MELLITUS
     Dosage: UNK, 3/D
  2. LANTUS [Concomitant]
     Dosage: UNK, EACH EVENING

REACTIONS (12)
  - BACK PAIN [None]
  - BLOOD GLUCOSE DECREASED [None]
  - CONFUSIONAL STATE [None]
  - DYSPNOEA [None]
  - HALLUCINATION, VISUAL [None]
  - INFECTION [None]
  - LUNG DISORDER [None]
  - MALAISE [None]
  - OXYGEN CONSUMPTION DECREASED [None]
  - PAIN IN EXTREMITY [None]
  - SLUGGISHNESS [None]
  - VISUAL ACUITY REDUCED [None]
